FAERS Safety Report 12101528 (Version 1)
Quarter: 2016Q1

REPORT INFORMATION
  Report Type: Spontaneous
  Country: IT (occurrence: IT)
  Receive Date: 20160222
  Receipt Date: 20160222
  Transmission Date: 20160526
  Serious: Yes (Other)
  Sender: FDA-Public Use
  Company Number: IT-VIIV HEALTHCARE LIMITED-IT2016GSK022008

PATIENT
  Age: 38 Year
  Sex: Male

DRUGS (10)
  1. BACTRIM [Concomitant]
     Active Substance: SULFAMETHOXAZOLE\TRIMETHOPRIM
  2. TARGOSID [Concomitant]
     Active Substance: TEICOPLANIN
  3. CLEXANE [Concomitant]
     Active Substance: ENOXAPARIN SODIUM
  4. REYATAZ [Suspect]
     Active Substance: ATAZANAVIR SULFATE
     Indication: HIV INFECTION
     Dosage: 1 UNK, QD
     Dates: start: 20090101, end: 20160202
  5. PANTORC [Concomitant]
     Active Substance: PANTOPRAZOLE SODIUM
  6. KIVEXA [Suspect]
     Active Substance: ABACAVIR SULFATE\LAMIVUDINE
     Indication: HIV INFECTION
     Dosage: 1 UNK, QD
     Route: 048
     Dates: start: 20090101, end: 20160202
  7. NORVIR [Suspect]
     Active Substance: RITONAVIR
     Indication: HIV INFECTION
     Dosage: 100 MG, QD
     Dates: start: 20151211, end: 20160202
  8. NORMIX [Concomitant]
     Active Substance: RIFAXIMIN
  9. DIFLUCAN [Concomitant]
     Active Substance: FLUCONAZOLE
  10. LAEVOLAC [Concomitant]
     Active Substance: LACTULOSE

REACTIONS (6)
  - Agitation [Recovering/Resolving]
  - Depression [Recovering/Resolving]
  - Insomnia [Recovering/Resolving]
  - Libido disorder [Recovering/Resolving]
  - Tremor [Recovering/Resolving]
  - Constipation [Recovering/Resolving]

NARRATIVE: CASE EVENT DATE: 20160131
